FAERS Safety Report 14124418 (Version 2)
Quarter: 2017Q4

REPORT INFORMATION
  Report Type: Spontaneous
  Country: US (occurrence: US)
  Receive Date: 20171025
  Receipt Date: 20171031
  Transmission Date: 20180321
  Serious: No
  Sender: FDA-Public Use
  Company Number: US-PFIZER INC-2017067857

PATIENT
  Age: 72 Year
  Sex: Female
  Weight: 97.52 kg

DRUGS (12)
  1. CLOPIDOGREL [Concomitant]
     Active Substance: CLOPIDOGREL BISULFATE
     Indication: BLOOD VISCOSITY ABNORMAL
     Dosage: UNK
  2. DEXILANT [Concomitant]
     Active Substance: DEXLANSOPRAZOLE
     Dosage: UNK
  3. LYRICA [Suspect]
     Active Substance: PREGABALIN
     Indication: PAIN IN EXTREMITY
     Dosage: 100 MG, 3X/DAY
     Route: 048
     Dates: start: 2009
  4. LYRICA [Suspect]
     Active Substance: PREGABALIN
     Indication: NEURALGIA
  5. VITAMIN D [Concomitant]
     Active Substance: CHOLECALCIFEROL
     Dosage: UNK
  6. RANITIDINE. [Concomitant]
     Active Substance: RANITIDINE
     Dosage: UNK
  7. ATORVASTATIN [Concomitant]
     Active Substance: ATORVASTATIN
     Dosage: UNK
  8. TOLTERODINE [Concomitant]
     Active Substance: TOLTERODINE
     Indication: DYSURIA
     Dosage: UNK
  9. LEVOTHYROXINE. [Concomitant]
     Active Substance: LEVOTHYROXINE
     Indication: THYROID DISORDER
     Dosage: UNK
  10. LOSARTAN. [Concomitant]
     Active Substance: LOSARTAN
     Indication: HYPERTENSION
     Dosage: UNK
  11. KETOCONAZOLE. [Concomitant]
     Active Substance: KETOCONAZOLE
     Dosage: UNK (2 PERCENT)
  12. TRAMADOL. [Concomitant]
     Active Substance: TRAMADOL
     Indication: KNEE DEFORMITY

REACTIONS (4)
  - Dysstasia [Recovered/Resolved]
  - Grip strength decreased [Recovered/Resolved]
  - Fall [Recovered/Resolved]
  - Obesity [Unknown]

NARRATIVE: CASE EVENT DATE: 20171020
